FAERS Safety Report 6742839-3 (Version None)
Quarter: 2010Q2

REPORT INFORMATION
  Report Type: 
  Country: None (occurrence: None)
  Receive Date: 20100525
  Receipt Date: 20100518
  Transmission Date: 20101027
  Serious: Yes (Life-Threatening, Hospitalization, Disabling)
  Sender: FDA-Public Use
  Company Number: 2010SP027733

PATIENT
  Age: 73 Year
  Sex: Male

DRUGS (2)
  1. INTEGRILIN [Suspect]
     Indication: CATHETERISATION CARDIAC
     Dosage: IV
     Route: 042
  2. COUMADIN [Concomitant]

REACTIONS (7)
  - DEEP VEIN THROMBOSIS [None]
  - DIALYSIS [None]
  - DISSEMINATED INTRAVASCULAR COAGULATION [None]
  - ISCHAEMIC HEPATITIS [None]
  - MULTI-ORGAN FAILURE [None]
  - OVERDOSE [None]
  - THROMBOCYTOPENIA [None]
